FAERS Safety Report 11657214 (Version 2)
Quarter: 2015Q4

REPORT INFORMATION
  Report Type: Report from Study
  Country: US (occurrence: US)
  Receive Date: 20151023
  Receipt Date: 20151028
  Transmission Date: 20160304
  Serious: No
  Sender: FDA-Public Use
  Company Number: US-ABBVIE-15P-163-1378129-00

PATIENT
  Age: 29 Year
  Sex: Female

DRUGS (5)
  1. MIRENA [Concomitant]
     Active Substance: LEVONORGESTREL
     Indication: CONTRACEPTION
     Route: 015
  2. PROMETHAZINE [Concomitant]
     Active Substance: PROMETHAZINE\PROMETHAZINE HYDROCHLORIDE
     Indication: PRODUCT USED FOR UNKNOWN INDICATION
  3. LUPRON DEPOT [Suspect]
     Active Substance: LEUPROLIDE ACETATE
     Indication: ENDOMETRIOSIS
     Route: 030
     Dates: start: 20150205
  4. BUTRANS [Concomitant]
     Active Substance: BUPRENORPHINE
     Indication: MIGRAINE
  5. BUTRANS [Concomitant]
     Active Substance: BUPRENORPHINE
     Indication: PAIN

REACTIONS (4)
  - Hot flush [Recovered/Resolved]
  - Adnexa uteri pain [Not Recovered/Not Resolved]
  - Arthralgia [Not Recovered/Not Resolved]
  - Endometriosis [Not Recovered/Not Resolved]

NARRATIVE: CASE EVENT DATE: 201502
